FAERS Safety Report 6299805-4 (Version None)
Quarter: 2009Q3

REPORT INFORMATION
  Report Type: 
  Country: None (occurrence: None)
  Receive Date: 20090806
  Receipt Date: 20090727
  Transmission Date: 20100115
  Serious: Yes (Hospitalization, Other)
  Sender: FDA-Public Use
  Company Number: US-ABBOTT-09P-163-0586352-00

PATIENT
  Sex: Male
  Weight: 85.352 kg

DRUGS (4)
  1. HUMIRA [Suspect]
     Indication: COLITIS ULCERATIVE
     Dosage: LOADING DOSE
     Dates: start: 20090609, end: 20090707
  2. PREDNISONE [Suspect]
     Indication: COLITIS ULCERATIVE
     Dosage: 10-50MG
     Route: 048
  3. REMICADE [Suspect]
     Indication: COLITIS ULCERATIVE
     Dates: start: 20031201, end: 20081101
  4. CIMZIA [Suspect]
     Indication: COLITIS ULCERATIVE
     Dates: start: 20081112, end: 20090601

REACTIONS (13)
  - ABDOMINAL DISTENSION [None]
  - ABDOMINAL PAIN [None]
  - ADENOCARCINOMA [None]
  - APPENDIX DISORDER [None]
  - ASCITES [None]
  - COLONIC OBSTRUCTION [None]
  - COLONIC POLYP [None]
  - LOCALISED INTRAABDOMINAL FLUID COLLECTION [None]
  - MESENTERIC VEIN THROMBOSIS [None]
  - NEPHROLITHIASIS [None]
  - PERITONITIS [None]
  - PORTAL VEIN THROMBOSIS [None]
  - SPLENIC VEIN THROMBOSIS [None]
